FAERS Safety Report 6227931-4 (Version None)
Quarter: 2009Q2

REPORT INFORMATION
  Report Type: 
  Country: None (occurrence: None)
  Receive Date: 20090612
  Receipt Date: 20090602
  Transmission Date: 20091009
  Serious: Yes (Hospitalization)
  Sender: FDA-Public Use
  Company Number: AT-ABBOTT-09P-009-0564346-01

PATIENT
  Sex: Female

DRUGS (2)
  1. HUMIRA [Suspect]
     Indication: CROHN'S DISEASE
     Route: 058
     Dates: start: 20070404, end: 20081214
  2. HUMIRA [Suspect]
     Route: 058
     Dates: start: 20090125

REACTIONS (2)
  - ABSCESS [None]
  - ANAL FISTULA [None]
